FAERS Safety Report 23430452 (Version 2)
Quarter: 2024Q2

REPORT INFORMATION
  Report Type: Spontaneous
  Country: IN (occurrence: IN)
  Receive Date: 20240123
  Receipt Date: 20240402
  Transmission Date: 20240716
  Serious: Yes (Hospitalization)
  Sender: FDA-Public Use
  Company Number: IN-NOVOPROD-1164455

PATIENT
  Sex: Male

DRUGS (1)
  1. TRESIBA [Suspect]
     Active Substance: INSULIN DEGLUDEC
     Indication: Product used for unknown indication
     Dosage: 35 UNITS OF TRESIBA 140 UNITS GOT INJECTED

REACTIONS (2)
  - Hospitalisation [Unknown]
  - Device delivery system issue [Unknown]
